FAERS Safety Report 5062895-0 (Version None)
Quarter: 2006Q3

REPORT INFORMATION
  Report Type: 
  Country: None (occurrence: None)
  Receive Date: 20060724
  Receipt Date: 20060711
  Transmission Date: 20061208
  Serious: Yes (Other)
  Sender: FDA-Public Use
  Company Number: 2006029502

PATIENT
  Sex: Female

DRUGS (5)
  1. LYRICA [Suspect]
     Indication: NEURALGIA
     Dosage: 150 MG (75 MG, 2 IN 1 D), ORAL
     Route: 048
  2. NEURONTIN [Concomitant]
  3. TEGRETOL [Concomitant]
  4. ZOLOFT [Concomitant]
  5. ALL OTHER THERAPEUTIC PRODUCTS (ALL OTHER THERAPEUTIC PRODUCTS) [Concomitant]

REACTIONS (5)
  - ANAPHYLACTIC REACTION [None]
  - DYSPNOEA [None]
  - FACE OEDEMA [None]
  - LARYNGEAL OEDEMA [None]
  - SPEECH DISORDER [None]
